FAERS Safety Report 22083731 (Version 1)
Quarter: 2023Q1

REPORT INFORMATION
  Report Type: Spontaneous
  Country: US (occurrence: US)
  Receive Date: 20230310
  Receipt Date: 20230310
  Transmission Date: 20230418
  Serious: No
  Sender: FDA-Public Use
  Company Number: US-009507513-2302USA007689

PATIENT
  Age: 72 Year
  Sex: Female

DRUGS (1)
  1. KEYTRUDA [Suspect]
     Active Substance: PEMBROLIZUMAB
     Indication: Renal cancer stage IV
     Dosage: UNK, EVERY 3 WEEKS
     Route: 042
     Dates: start: 20220720

REACTIONS (3)
  - Blood pressure abnormal [Unknown]
  - Blister [Unknown]
  - Skin lesion [Unknown]

NARRATIVE: CASE EVENT DATE: 20221120
